FAERS Safety Report 4828412-2 (Version None)
Quarter: 2005Q4

REPORT INFORMATION
  Report Type: 
  Country: None (occurrence: None)
  Receive Date: 20051109
  Receipt Date: 20051027
  Transmission Date: 20060501
  Serious: Yes (Other)
  Sender: FDA-Public Use
  Company Number: 200509552

PATIENT
  Sex: Female

DRUGS (1)
  1. IMMUNE GLOBULIN INTRAVENOUS (HUMAN) [Suspect]
     Dosage: IV
     Route: 042
     Dates: start: 20040901

REACTIONS (7)
  - BODY TEMPERATURE FLUCTUATION [None]
  - DIFFICULTY IN WALKING [None]
  - FATIGUE [None]
  - INFLAMMATION [None]
  - LIVER DISORDER [None]
  - LIVER FUNCTION TEST ABNORMAL [None]
  - MASS [None]
